FAERS Safety Report 18293992 (Version 1)
Quarter: 2020Q3

REPORT INFORMATION
  Report Type: Spontaneous
  Country: DK (occurrence: DK)
  Receive Date: 20200921
  Receipt Date: 20200921
  Transmission Date: 20201103
  Serious: Yes (Hospitalization)
  Sender: FDA-Public Use
  Company Number: DK-009507513-2009DNK006966

PATIENT
  Age: 39 Year
  Sex: Female

DRUGS (19)
  1. FLUCONAZOLE. [Concomitant]
     Active Substance: FLUCONAZOLE
     Indication: ORAL FUNGAL INFECTION
     Dosage: 150 MILLIGRAM, QD
     Route: 048
     Dates: start: 20200825
  2. REFRESH CELLUVISC [Concomitant]
     Active Substance: CARBOXYMETHYLCELLULOSE SODIUM
     Indication: DRY EYE
     Dosage: 1 GTT DROPS, (1/12 MILLILITRE), AS NECESSARY
     Route: 050
     Dates: start: 20200805
  3. KLIOGEST (ESTRADIOL (+) ESTRIOL (+) NORETHINDRONE ACETATE) [Concomitant]
     Indication: HORMONE THERAPY
     Dosage: 1 DOSAGE FORM, QD
     Route: 048
     Dates: start: 20200813
  4. OXYCODONE [Concomitant]
     Active Substance: OXYCODONE
     Indication: PAIN
     Dosage: STRENGTH: VARIATION DOSAGE: VARIATION
     Route: 048
     Dates: start: 20200805
  5. SODIUM CHLORIDE. [Concomitant]
     Active Substance: SODIUM CHLORIDE
     Indication: HYPONATRAEMIA
     Dosage: 750 MILLIGRAM, QD
     Route: 048
     Dates: start: 20200810
  6. MOTIRON [Concomitant]
     Active Substance: METHYLPHENIDATE HYDROCHLORIDE
     Indication: PRODUCT USED FOR UNKNOWN INDICATION
     Dosage: UNK
     Route: 048
  7. METHADONE HYDROCHLORIDE. [Concomitant]
     Active Substance: METHADONE HYDROCHLORIDE
     Indication: PAIN
     Dosage: 15 MILLIGRAM, QD
     Route: 048
     Dates: start: 20200519
  8. FRAGMIN [Concomitant]
     Active Substance: DALTEPARIN SODIUM
     Indication: THROMBOSIS
     Dosage: STRENGTH: 25.000 ANTI?XA IE/ML; 0.6 MILLILITER, QD
     Route: 058
     Dates: start: 20200715
  9. MOTILIUM [Concomitant]
     Active Substance: DOMPERIDONE
     Indication: NAUSEA
     Dosage: 30 MILLIGRAM, QD
     Route: 048
     Dates: start: 20200803
  10. MORPHINE [Concomitant]
     Active Substance: MORPHINE
     Indication: PAIN
     Dosage: 120 MILLIGRAM, QD
     Route: 048
     Dates: start: 20200715
  11. KEYTRUDA [Suspect]
     Active Substance: PEMBROLIZUMAB
     Dosage: 150 MILLIGRAM
     Route: 042
     Dates: start: 20200828
  12. MOVICOL [Concomitant]
     Active Substance: POLYETHYLENE GLYCOL 3350\POTASSIUM CHLORIDE\SODIUM BICARBONATE\SODIUM CHLORIDE
     Indication: CONSTIPATION
     Dosage: 1 DOSAGE FORM, AS  NECESSARY
     Route: 048
     Dates: start: 20200519
  13. LACTULOSE. [Concomitant]
     Active Substance: LACTULOSE
     Indication: CONSTIPATION
     Dosage: 20 MILLILITER, QD
     Route: 048
     Dates: start: 20200616
  14. MIRTAZAPINE. [Concomitant]
     Active Substance: MIRTAZAPINE
     Indication: INSOMNIA
     Dosage: 30 MILLIGRAM, QD
     Route: 048
     Dates: start: 20200618
  15. PANTOPRAZOLE [Concomitant]
     Active Substance: PANTOPRAZOLE
     Indication: PROPHYLAXIS AGAINST GASTROINTESTINAL ULCER
     Dosage: 40 MILLIGRAM, QD
     Route: 048
     Dates: start: 20200721
  16. KEYTRUDA [Suspect]
     Active Substance: PEMBROLIZUMAB
     Indication: CERVIX CANCER METASTATIC
     Dosage: 125 MILLIGRAM
     Route: 042
     Dates: start: 20200806
  17. PREGABALIN. [Concomitant]
     Active Substance: PREGABALIN
     Indication: PAIN
     Dosage: 150 MILLIGRAM, QD
     Route: 048
     Dates: start: 20200721
  18. LAXOBERAL [Concomitant]
     Active Substance: SODIUM PICOSULFATE
     Indication: CONSTIPATION
     Dosage: 10 GTT DROPS  (1/12 MILLILITRE), QD
     Route: 048
     Dates: start: 20200818
  19. METOCLOPRAMIDE. [Concomitant]
     Active Substance: METOCLOPRAMIDE
     Indication: NAUSEA
     Dosage: MAXIMUM 10 MG 3 TIMES DAILY
     Route: 048
     Dates: start: 20200715, end: 20200901

REACTIONS (2)
  - Blood creatinine increased [Not Recovered/Not Resolved]
  - Prerenal failure [Not Recovered/Not Resolved]

NARRATIVE: CASE EVENT DATE: 20200901
